FAERS Safety Report 6308134-1 (Version None)
Quarter: 2009Q3

REPORT INFORMATION
  Report Type: 
  Country: None (occurrence: None)
  Receive Date: 20090813
  Receipt Date: 20090731
  Transmission Date: 20100115
  Serious: Yes (Hospitalization)
  Sender: FDA-Public Use
  Company Number: JP-PFIZER INC-2009247058

PATIENT
  Age: 82 Year

DRUGS (3)
  1. HALCION [Suspect]
     Dosage: UNK
     Route: 048
     Dates: end: 20090615
  2. AMOBAN [Concomitant]
  3. MYSLEE [Concomitant]

REACTIONS (4)
  - DIZZINESS [None]
  - DYSARTHRIA [None]
  - HEPATIC FUNCTION ABNORMAL [None]
  - OVERDOSE [None]
